FAERS Safety Report 26027019 (Version 1)
Quarter: 2025Q4

REPORT INFORMATION
  Report Type: Spontaneous
  Country: EU (occurrence: EU)
  Receive Date: 20251111
  Receipt Date: 20251111
  Transmission Date: 20260118
  Serious: Yes (Other)
  Sender: PFIZER
  Company Number: None

PATIENT
  Age: 70 Year
  Sex: Male

DRUGS (4)
  1. AZITHROMYCIN [Suspect]
     Active Substance: AZITHROMYCIN
     Indication: Diarrhoea
     Dosage: 1 G, SINGLE
     Route: 058
     Dates: start: 20230908, end: 20230908
  2. XYLOCAINE [Suspect]
     Active Substance: LIDOCAINE HYDROCHLORIDE
     Indication: Local anaesthesia
     Dosage: 1 DF, SINGLE
     Route: 058
     Dates: start: 20230908, end: 20230908
  3. POVIDONE-IODINE [Suspect]
     Active Substance: POVIDONE-IODINE
     Indication: Infection prophylaxis
     Dosage: 1 DF, SINGLE
     Route: 058
     Dates: start: 20230908, end: 20230908
  4. RACECADOTRIL [Suspect]
     Active Substance: RACECADOTRIL
     Indication: Diarrhoea
     Dosage: 1 DF, 3X/DAY (EVERY 8 HR)
     Route: 058
     Dates: start: 20230908, end: 20230908

REACTIONS (4)
  - Rash maculo-papular [Recovered/Resolved]
  - Pruritus [Recovered/Resolved]
  - Off label use [Unknown]
  - Off label use [Unknown]

NARRATIVE: CASE EVENT DATE: 20230908
